FAERS Safety Report 9069727 (Version 1)
Quarter: 2013Q1

REPORT INFORMATION
  Report Type: Report from Study
  Country: US (occurrence: US)
  Receive Date: 20130131
  Receipt Date: 20130131
  Transmission Date: 20140127
  Serious: Yes (Hospitalization, Other)
  Sender: FDA-Public Use
  Company Number: US-ABBOTT-12P-163-1004913-00

PATIENT
  Age: 42 Year
  Sex: Female

DRUGS (3)
  1. HUMIRA [Suspect]
     Indication: CROHN^S DISEASE
     Dates: start: 201206, end: 201208
  2. HUMIRA [Suspect]
     Dates: start: 20121105
  3. UNKNOWN MEDICATIONS [Concomitant]
     Indication: PRODUCT USED FOR UNKNOWN INDICATION

REACTIONS (7)
  - Abscess [Recovered/Resolved]
  - Malaise [Unknown]
  - Pyrexia [Unknown]
  - White blood cell count increased [Unknown]
  - Swelling face [Unknown]
  - Erythema [Unknown]
  - Facial pain [Unknown]
